FAERS Safety Report 13675646 (Version 2)
Quarter: 2017Q2

REPORT INFORMATION
  Report Type: Spontaneous
  Country: US (occurrence: US)
  Receive Date: 20170621
  Receipt Date: 20170629
  Transmission Date: 20170830
  Serious: No
  Sender: FDA-Public Use
  Company Number: US-BAUSCH-BL-2017-019419

PATIENT
  Age: 77 Year
  Sex: Female

DRUGS (1)
  1. LATANOPROST OPHTHALMIC SOLUTION 0.005% [Suspect]
     Active Substance: LATANOPROST
     Indication: GLAUCOMA
     Dosage: BEDTIME (IN LEFT EYE) STARTED AFTER THE LASER SURGERY WHICH WAS DONE ON 05/JUL/2016.
     Route: 047
     Dates: start: 2016, end: 20170611

REACTIONS (8)
  - Vision blurred [Recovered/Resolved]
  - Eye irritation [Recovered/Resolved]
  - Nasal congestion [Recovered/Resolved]
  - Cough [Recovered/Resolved]
  - Abnormal sensation in eye [Recovered/Resolved]
  - Dry eye [Recovered/Resolved]
  - Rhinorrhoea [Recovered/Resolved]
  - Eye pain [Recovered/Resolved]

NARRATIVE: CASE EVENT DATE: 2016
